FAERS Safety Report 5600110-7 (Version None)
Quarter: 2008Q1

REPORT INFORMATION
  Report Type: 
  Country: None (occurrence: None)
  Receive Date: 20080123
  Receipt Date: 20080116
  Transmission Date: 20080703
  Serious: Yes (Other)
  Sender: FDA-Public Use
  Company Number: B0376979A

PATIENT
  Age: 45 Year
  Sex: Male

DRUGS (3)
  1. PAROXETINE [Suspect]
     Route: 065
     Dates: start: 19980514
  2. THIORIDAZINE [Concomitant]
     Dosage: 25MG TWICE PER DAY
     Route: 065
     Dates: start: 19980101
  3. DIAZEPAM [Concomitant]
     Route: 065
     Dates: start: 20050203

REACTIONS (13)
  - AGGRESSION [None]
  - CONFUSIONAL STATE [None]
  - DIARRHOEA [None]
  - DISORIENTATION [None]
  - DIZZINESS [None]
  - MALAISE [None]
  - MOOD ALTERED [None]
  - MOOD SWINGS [None]
  - NIGHTMARE [None]
  - PARAESTHESIA [None]
  - SUICIDAL BEHAVIOUR [None]
  - VERTIGO [None]
  - WITHDRAWAL SYNDROME [None]
